FAERS Safety Report 6107393-8 (Version None)
Quarter: 2009Q1

REPORT INFORMATION
  Report Type: 
  Country: None (occurrence: None)
  Receive Date: 20090227
  Receipt Date: 20080410
  Transmission Date: 20090719
  Serious: Yes (Hospitalization)
  Sender: FDA-Public Use
  Company Number: RB-0733-2008

PATIENT
  Age: 49 Year
  Sex: Male

DRUGS (3)
  1. SUBUTEX [Suspect]
     Indication: DRUG DEPENDENCE
     Dosage: 8 MG QD SUBLINGUAL
     Route: 060
     Dates: start: 20070426, end: 20070426
  2. ZOCOR [Concomitant]
  3. CYMBALTA [Concomitant]

REACTIONS (1)
  - DRUG WITHDRAWAL SYNDROME [None]
